FAERS Safety Report 5002656-1 (Version None)
Quarter: 2006Q2

REPORT INFORMATION
  Report Type: 
  Country: None (occurrence: None)
  Receive Date: 20060510
  Receipt Date: 20060424
  Transmission Date: 20061013
  Serious: Yes (Hospitalization)
  Sender: FDA-Public Use
  Company Number: DSA_28060_2006

PATIENT
  Age: 72 Year
  Sex: Female
  Weight: 44 kg

DRUGS (10)
  1. RENIVACE [Suspect]
     Indication: HYPERTENSION
     Dosage: 2.5 MG Q DAY PO
     Route: 048
     Dates: start: 19900307, end: 20060408
  2. RENIVACE [Suspect]
     Indication: HYPERTENSION
     Dosage: 5 MG Q DAY PO
     Route: 048
  3. RENIVACE [Suspect]
     Indication: HYPERTENSION
     Dosage: 2.5 MG Q DAY PO
     Route: 048
  4. DEPROMEL /00615201/ [Suspect]
     Indication: DEPRESSIVE SYMPTOM
     Dosage: 50 MG Q DAY PO
     Route: 048
     Dates: start: 20060405, end: 20060408
  5. MYONAL [Suspect]
     Dosage: 50 MG Q DAY PO
     Route: 048
     Dates: start: 20060405
  6. GASMOTIN [Suspect]
     Dosage: 15 MG Q DAY PO
     Route: 048
     Dates: start: 20060405
  7. PAXIL [Suspect]
     Indication: DEPRESSIVE SYMPTOM
     Dosage: DF PO
     Route: 048
  8. MEILAX [Suspect]
     Indication: DEPRESSIVE SYMPTOM
     Dosage: 1 MG Q DAY PO
     Route: 048
  9. HYPEN [Concomitant]
  10. GASLON [Concomitant]

REACTIONS (12)
  - ANXIETY [None]
  - BACK PAIN [None]
  - BLOOD PRESSURE FLUCTUATION [None]
  - BLOOD PRESSURE SYSTOLIC INCREASED [None]
  - DYSSTASIA [None]
  - FALL [None]
  - HYPOTENSION [None]
  - LACUNAR INFARCTION [None]
  - MITRAL VALVE INCOMPETENCE [None]
  - SINUS BRADYCARDIA [None]
  - SOMNOLENCE [None]
  - TREATMENT NONCOMPLIANCE [None]
